FAERS Safety Report 7356364-2 (Version None)
Quarter: 2011Q1

REPORT INFORMATION
  Report Type: 
  Country: None (occurrence: None)
  Receive Date: 20110316
  Receipt Date: 20110310
  Transmission Date: 20110831
  Serious: Yes (Hospitalization, Other)
  Sender: FDA-Public Use
  Company Number: JP-PFIZER INC-2010123326

PATIENT
  Age: 61 Year
  Sex: Female
  Weight: 48.6 kg

DRUGS (2)
  1. SUTENT [Suspect]
     Indication: RENAL CELL CARCINOMA
     Dosage: 50 MG, 1X/DAY
     Route: 048
     Dates: start: 20100215, end: 20100225
  2. CALONAL [Concomitant]
     Indication: PYREXIA
     Dosage: 300 MG, 3X/DAY
     Dates: start: 20091020, end: 20091025

REACTIONS (3)
  - PLATELET COUNT DECREASED [None]
  - HEPATIC FUNCTION ABNORMAL [None]
  - INTERSTITIAL LUNG DISEASE [None]
